FAERS Safety Report 9757544 (Version 1)
Quarter: 2013Q4

REPORT INFORMATION
  Report Type: Spontaneous
  Country: FR (occurrence: FR)
  Receive Date: 20131216
  Receipt Date: 20131216
  Transmission Date: 20140711
  Serious: Yes (Death)
  Sender: FDA-Public Use
  Company Number: FR-ROCHE-1319904

PATIENT
  Age: 74 Year
  Sex: Male

DRUGS (7)
  1. AVASTIN [Suspect]
     Indication: COLON CANCER METASTATIC
     Route: 042
     Dates: start: 20111003
  2. AVASTIN [Suspect]
     Route: 065
     Dates: start: 20120130
  3. OXALIPLATINO TEVA [Suspect]
     Indication: PRODUCT USED FOR UNKNOWN INDICATION
     Route: 065
     Dates: start: 20110607
  4. OXALIPLATINO TEVA [Suspect]
     Route: 065
     Dates: start: 20111003
  5. OXALIPLATINO TEVA [Suspect]
     Route: 065
     Dates: start: 20120130
  6. FLUOROURACILE [Suspect]
     Indication: PRODUCT USED FOR UNKNOWN INDICATION
     Route: 042
     Dates: start: 20100630
  7. IRINOTECAN [Concomitant]
     Route: 065
     Dates: start: 20111003

REACTIONS (1)
  - Lung disorder [Fatal]
